FAERS Safety Report 5299951-8 (Version None)
Quarter: 2007Q2

REPORT INFORMATION
  Report Type: 
  Country: None (occurrence: None)
  Receive Date: 20070410
  Receipt Date: 20070403
  Transmission Date: 20071010
  Serious: Yes (Hospitalization)
  Sender: FDA-Public Use
  Company Number: D0052833A

PATIENT
  Age: 46 Year
  Sex: Male

DRUGS (6)
  1. ESKALITH [Suspect]
     Dosage: 450 MG / SEE DOSAGE TEXT / ORAL
     Route: 048
     Dates: start: 20070403, end: 20070403
  2. DOXEPIN HYDROCHLORIDE [Suspect]
     Dosage: 25 MG / SEE DOSAGE TEXT / ORAL
     Route: 048
     Dates: start: 20070403, end: 20070403
  3. ACETAMINOPHEN [Suspect]
     Dosage: 500 MG / SEE DOSAGE TEXT / ORAL
     Route: 048
     Dates: start: 20070403, end: 20070403
  4. QUETIAPINE FUMARATE [Suspect]
     Dosage: 100 MG / SEE DOSAGE TEXT / ORAL
     Route: 048
     Dates: start: 20070403, end: 20070403
  5. ZALEPLON [Suspect]
     Dosage: UNK / SEE DOSAGE TEXT / ORAL
     Route: 048
     Dates: start: 20070403, end: 20070403
  6. ETHANOL (FORMULATION UNKNOWN) (ALCOHOL) [Suspect]
     Dosage: UNK / UNKNOWN / ORAL
     Route: 048
     Dates: start: 20070403, end: 20070403

REACTIONS (6)
  - CARDIOVASCULAR INSUFFICIENCY [None]
  - HYPOTENSION [None]
  - HYPOTHERMIA [None]
  - MULTIPLE DRUG OVERDOSE INTENTIONAL [None]
  - SOPOR [None]
  - TACHYCARDIA [None]
